FAERS Safety Report 5520418-3 (Version None)
Quarter: 2007Q4

REPORT INFORMATION
  Report Type: 
  Country: None (occurrence: None)
  Receive Date: 20071119
  Receipt Date: 20071107
  Transmission Date: 20080405
  Serious: Yes (Hospitalization, Disabling, Other)
  Sender: FDA-Public Use
  Company Number: US-PFIZER INC-2006153152

PATIENT
  Sex: Female
  Weight: 86.2 kg

DRUGS (3)
  1. CELEBREX [Suspect]
     Indication: INFLAMMATION
     Route: 048
  2. BEXTRA [Suspect]
     Route: 048
  3. VIOXX [Suspect]
     Route: 048

REACTIONS (5)
  - CARDIAC FAILURE CONGESTIVE [None]
  - HEART RATE INCREASED [None]
  - HYPERLIPIDAEMIA [None]
  - HYPERTENSION [None]
  - TYPE 2 DIABETES MELLITUS [None]
